FAERS Safety Report 8785835 (Version 2)
Quarter: 2012Q4

REPORT INFORMATION
  Report Type: 
  Country: US (occurrence: US)
  Receive Date: 20120914
  Receipt Date: 20120914
  Transmission Date: 20130627
  Serious: No
  Sender: FDA-Public Use
  Company Number: US-MYLANLABS-2012S1017080

PATIENT
  Age: 84 Year
  Sex: Female

DRUGS (6)
  1. CLOPIDOGREL TABLETS USP [Suspect]
     Indication: STENT PLACEMENT
     Route: 048
     Dates: start: 201206
  2. PLAVIX [Suspect]
     Indication: STENT PLACEMENT
     Route: 048
     Dates: start: 20120612, end: 201206
  3. LOPRESSOR [Concomitant]
     Indication: BLOOD PRESSURE INCREASED
     Route: 048
  4. VITAMIN [Concomitant]
     Indication: VITAMIN SUPPLEMENTATION
     Route: 048
  5. ASA [Concomitant]
     Indication: STENT PLACEMENT
     Route: 048
  6. ASA [Concomitant]
     Indication: STENT PLACEMENT
     Route: 048

REACTIONS (3)
  - Contusion [Not Recovered/Not Resolved]
  - Drug ineffective [None]
  - Self-medication [None]
